FAERS Safety Report 6664254-3 (Version None)
Quarter: 2010Q2

REPORT INFORMATION
  Report Type: 
  Country: None (occurrence: None)
  Receive Date: 20100401
  Receipt Date: 20100323
  Transmission Date: 20101027
  Serious: Yes (Life-Threatening, Hospitalization, Other)
  Sender: FDA-Public Use
  Company Number: PHHY2008CA32617

PATIENT
  Sex: Male

DRUGS (6)
  1. DIOVAN [Suspect]
     Indication: HYPERTENSION
     Dosage: 80 MG
     Route: 048
     Dates: start: 20081211
  2. ADALAT CC [Concomitant]
     Dosage: 30 MG
  3. ALTACE [Concomitant]
     Indication: HYPERTENSION
  4. BETA BLOCKING AGENTS [Concomitant]
     Indication: HYPERTENSION
  5. ACTOS [Concomitant]
  6. MICARDIS [Concomitant]

REACTIONS (7)
  - ACUTE MYOCARDIAL INFARCTION [None]
  - CATHETER PLACEMENT [None]
  - CHEST DISCOMFORT [None]
  - CHEST PAIN [None]
  - FEELING HOT [None]
  - HYPERTENSION [None]
  - PALLOR [None]
